FAERS Safety Report 7024356-9 (Version None)
Quarter: 2010Q4

REPORT INFORMATION
  Report Type: 
  Country: None (occurrence: None)
  Receive Date: 20101001
  Receipt Date: 20100923
  Transmission Date: 20110411
  Serious: Yes (Hospitalization, Other)
  Sender: FDA-Public Use
  Company Number: DE-BAYER-201040688GPV

PATIENT
  Sex: Female
  Weight: 2.47 kg

DRUGS (1)
  1. MIRENA [Suspect]
     Route: 064
     Dates: start: 20090301

REACTIONS (2)
  - FOETAL DISTRESS SYNDROME [None]
  - PREMATURE BABY [None]
